FAERS Safety Report 8382988-X (Version None)
Quarter: 2012Q2

REPORT INFORMATION
  Report Type: 
  Country: None (occurrence: None)
  Receive Date: 20120524
  Receipt Date: 20120518
  Transmission Date: 20120825
  Serious: Yes (Hospitalization, Congenital Anomaly, Other)
  Sender: FDA-Public Use
  Company Number: US-PFIZER INC-2012048292

PATIENT
  Sex: Male
  Weight: 3.5 kg

DRUGS (3)
  1. CYANOCOBALAMIN [Concomitant]
     Dosage: UNK
     Route: 064
     Dates: start: 20051215
  2. MULTI-VITAMINS [Concomitant]
     Dosage: DAILY
     Route: 064
     Dates: start: 20051121
  3. ZOLOFT [Suspect]
     Dosage: 50 MG, UNK
     Route: 064
     Dates: start: 20051205

REACTIONS (17)
  - VENTRICULAR SEPTAL DEFECT [None]
  - VENTRICULAR HYPOPLASIA [None]
  - ATRIAL SEPTAL DEFECT [None]
  - PHIMOSIS [None]
  - CARDIAC FAILURE CONGESTIVE [None]
  - VENTRICULAR HYPERTROPHY [None]
  - PULMONARY VALVE INCOMPETENCE [None]
  - CARDIOMEGALY [None]
  - TRICUSPID VALVE INCOMPETENCE [None]
  - PULMONARY OEDEMA [None]
  - GROWTH RETARDATION [None]
  - WEIGHT GAIN POOR [None]
  - AORTIC VALVE DISEASE [None]
  - AORTIC VALVE INCOMPETENCE [None]
  - MITRAL VALVE INCOMPETENCE [None]
  - MATERNAL EXPOSURE TIMING UNSPECIFIED [None]
  - BUNDLE BRANCH BLOCK RIGHT [None]
